FAERS Safety Report 6355838-0 (Version None)
Quarter: 2009Q3

REPORT INFORMATION
  Report Type: 
  Country: None (occurrence: None)
  Receive Date: 20090915
  Receipt Date: 20090909
  Transmission Date: 20100115
  Serious: No
  Sender: FDA-Public Use
  Company Number: US-JNJFOC-20090301805

PATIENT
  Sex: Female
  Weight: 78.02 kg

DRUGS (3)
  1. DURAGESIC-100 [Suspect]
     Route: 062
  2. DURAGESIC-100 [Suspect]
     Indication: COMPLEX REGIONAL PAIN SYNDROME
     Route: 062
  3. OXYCODONE [Concomitant]
     Indication: PAIN
     Route: 048

REACTIONS (5)
  - APPLICATION SITE VESICLES [None]
  - DRUG ADMINISTERED AT INAPPROPRIATE SITE [None]
  - MALAISE [None]
  - NAUSEA [None]
  - PRODUCT QUALITY ISSUE [None]
